FAERS Safety Report 15931146 (Version 1)
Quarter: 2019Q1

REPORT INFORMATION
  Report Type: Spontaneous
  Country: FR (occurrence: FR)
  Receive Date: 20190207
  Receipt Date: 20190207
  Transmission Date: 20190417
  Serious: Yes (Hospitalization)
  Sender: FDA-Public Use
  Company Number: FR-ASTRAZENECA-2019SE18634

PATIENT
  Age: 70 Year
  Sex: Female
  Weight: 83 kg

DRUGS (11)
  1. PRIMPERAN [Concomitant]
     Active Substance: METOCLOPRAMIDE HYDROCHLORIDE
     Dates: start: 20180412, end: 20180418
  2. PRINCI B [Concomitant]
     Dates: start: 20180412, end: 20180418
  3. PARACETAMOL [Concomitant]
     Active Substance: ACETAMINOPHEN
     Dates: start: 20180412, end: 20180418
  4. CEFTRIAXONE. [Suspect]
     Active Substance: CEFTRIAXONE
     Indication: ANTIBIOTIC THERAPY
     Route: 051
     Dates: start: 20180415, end: 20180418
  5. SPASFON [Concomitant]
     Dates: start: 20180412, end: 20180418
  6. ESOMEPRAZOLE. [Suspect]
     Active Substance: ESOMEPRAZOLE MAGNESIUM
     Indication: GASTROOESOPHAGEAL REFLUX DISEASE
     Route: 048
     Dates: start: 20180412, end: 20180418
  7. METRONIDAZOLE. [Suspect]
     Active Substance: METRONIDAZOLE
     Indication: ANTIBIOTIC THERAPY
     Route: 065
     Dates: start: 20180415, end: 20180418
  8. CALCIPARINE [Concomitant]
     Active Substance: HEPARIN CALCIUM
     Dates: start: 20180412, end: 20180418
  9. AMOXICILLINE [Suspect]
     Active Substance: AMOXICILLIN
     Indication: ANTIBIOTIC THERAPY
     Route: 065
     Dates: start: 20180415, end: 20180418
  10. TRAMADOL. [Concomitant]
     Active Substance: TRAMADOL
     Dates: start: 20180412, end: 20180418
  11. CLAVULANIC ACID [Suspect]
     Active Substance: CLAVULANIC ACID
     Indication: ANTIBIOTIC THERAPY
     Route: 065
     Dates: start: 20180415, end: 20180418

REACTIONS (1)
  - Acute generalised exanthematous pustulosis [Recovered/Resolved]

NARRATIVE: CASE EVENT DATE: 20180418
